FAERS Safety Report 9994960 (Version 1)
Quarter: 2014Q1

REPORT INFORMATION
  Report Type: Spontaneous
  Country: US (occurrence: None)
  Receive Date: 20140307
  Receipt Date: 20140307
  Transmission Date: 20141002
  Serious: Yes (Disabling)
  Sender: FDA-Public Use
  Company Number: None

PATIENT
  Age: 52 Year
  Sex: Male
  Weight: 74.84 kg

DRUGS (14)
  1. LOSARTAN [Suspect]
     Indication: BLOOD PRESSURE INCREASED
     Route: 048
     Dates: start: 201412
  2. IMMUNOSUPPRESSANTS [Concomitant]
  3. TACROLIMUS [Concomitant]
  4. MYCOPHENOLATE [Concomitant]
  5. PREDNISONE [Concomitant]
  6. RAPAMUNE [Concomitant]
  7. ^BABY^ ASPIRIN [Concomitant]
  8. SENSIPAR [Concomitant]
  9. FUROSEMIDE [Concomitant]
  10. CALCIOTRIL [Concomitant]
  11. OMEPRAZOLE [Concomitant]
  12. VITAMIN D [Concomitant]
  13. CALCIUM CITRATE [Concomitant]
  14. B COMPLEX [Concomitant]

REACTIONS (2)
  - Peripheral coldness [None]
  - Constipation [None]
